FAERS Safety Report 10861457 (Version 1)
Quarter: 2015Q1

REPORT INFORMATION
  Report Type: Spontaneous
  Country: GB (occurrence: GB)
  Receive Date: 20150224
  Receipt Date: 20150224
  Transmission Date: 20150721
  Serious: Yes (Other)
  Sender: FDA-Public Use
  Company Number: GB-CIPLA LTD.-2015GB01329

PATIENT

DRUGS (2)
  1. RAMIPRIL. [Suspect]
     Active Substance: RAMIPRIL
     Indication: HYPERTENSION
     Dosage: 1.25MG
     Route: 048
     Dates: start: 20141226, end: 20150124
  2. AMLODIPINE [Concomitant]
     Active Substance: AMLODIPINE BESYLATE
     Indication: HYPERTENSION

REACTIONS (4)
  - Joint swelling [Recovered/Resolved]
  - Cough [Recovered/Resolved]
  - Blood electrolytes abnormal [Unknown]
  - Flank pain [Recovered/Resolved]

NARRATIVE: CASE EVENT DATE: 20150114
